FAERS Safety Report 4535759-6 (Version None)
Quarter: 2004Q4

REPORT INFORMATION
  Report Type: 
  Country: None (occurrence: None)
  Receive Date: 20041223
  Receipt Date: 20040217
  Transmission Date: 20050328
  Serious: No
  Sender: FDA-Public Use
  Company Number: US-GLAXOSMITHKLINE-A0498557A

PATIENT
  Age: 86 Year
  Sex: Male

DRUGS (3)
  1. FLONASE [Suspect]
     Dosage: 50MCG PER DAY
     Route: 045
  2. PRAZOSIN HCL [Concomitant]
  3. QUINIDINE SULPHATE [Concomitant]
     Route: 065

REACTIONS (3)
  - AGEUSIA [None]
  - ANOSMIA [None]
  - EPISTAXIS [None]
